FAERS Safety Report 11069202 (Version 2)
Quarter: 2015Q2

REPORT INFORMATION
  Report Type: Spontaneous
  Country: AU (occurrence: AU)
  Receive Date: 20150427
  Receipt Date: 20150429
  Transmission Date: 20150821
  Serious: Yes (Death, Other)
  Sender: FDA-Public Use
  Company Number: PHHY2015AU048936

PATIENT
  Age: 67 Year
  Sex: Female

DRUGS (4)
  1. CICLOSPORIN [Suspect]
     Active Substance: CYCLOSPORINE
     Indication: ACUTE GRAFT VERSUS HOST DISEASE IN LIVER
  2. METHYLPREDNISOLONE. [Suspect]
     Active Substance: METHYLPREDNISOLONE
     Indication: ACUTE GRAFT VERSUS HOST DISEASE IN INTESTINE
     Dosage: 2 MG/KG, QD
     Route: 042
  3. CICLOSPORIN [Suspect]
     Active Substance: CYCLOSPORINE
     Indication: ACUTE GRAFT VERSUS HOST DISEASE IN INTESTINE
     Dosage: 1.5 MG/KG, Q12H
     Route: 042
  4. METHYLPREDNISOLONE. [Suspect]
     Active Substance: METHYLPREDNISOLONE
     Indication: ACUTE GRAFT VERSUS HOST DISEASE IN INTESTINE

REACTIONS (3)
  - Acute graft versus host disease in liver [Unknown]
  - Death [Fatal]
  - Acute graft versus host disease in intestine [Unknown]
